FAERS Safety Report 9147376 (Version 1)
Quarter: 2013Q1

REPORT INFORMATION
  Report Type: Spontaneous
  Country: FR (occurrence: None)
  Receive Date: 20130226
  Receipt Date: 20130226
  Transmission Date: 20140127
  Serious: Yes (Death)
  Sender: FDA-Public Use
  Company Number: FR-ZYDUS-000963

PATIENT
  Age: 37 Year
  Sex: Male

DRUGS (1)
  1. ROPINIROLE [Suspect]

REACTIONS (2)
  - Toxicity to various agents [None]
  - Alcohol interaction [None]
